FAERS Safety Report 5677786-1 (Version None)
Quarter: 2008Q1

REPORT INFORMATION
  Report Type: 
  Country: None (occurrence: None)
  Receive Date: 20080324
  Receipt Date: 20080318
  Transmission Date: 20080703
  Serious: Yes (Hospitalization, Other)
  Sender: FDA-Public Use
  Company Number: US-MERCK-0801USA03795

PATIENT
  Age: 17 Year
  Sex: Female
  Weight: 61 kg

DRUGS (6)
  1. SINGULAIR [Suspect]
     Indication: ASTHMA
     Route: 048
     Dates: start: 20060601, end: 20080201
  2. ADVAIR DISKUS 100/50 [Concomitant]
  3. PROVENTIL [Concomitant]
     Route: 065
  4. NASONEX [Concomitant]
     Route: 065
  5. CLARINEX [Concomitant]
     Route: 048
  6. NAPROXEN [Concomitant]
     Route: 065

REACTIONS (3)
  - CHOLANGITIS SCLEROSING [None]
  - HAEMOLYTIC ANAEMIA [None]
  - HEPATIC ENZYME INCREASED [None]
